FAERS Safety Report 8522045-2 (Version None)
Quarter: 2012Q3

REPORT INFORMATION
  Report Type: 
  Country: None (occurrence: None)
  Receive Date: 20120719
  Receipt Date: 20120712
  Transmission Date: 20120928
  Serious: Yes (Disabling)
  Sender: FDA-Public Use
  Company Number: CA-009507513-1206USA05091

PATIENT

DRUGS (6)
  1. BISOPROLOL FUMARATE [Concomitant]
  2. ASPIRIN [Concomitant]
     Dosage: UNK
     Dates: start: 20010101
  3. PLAVIX [Concomitant]
     Dosage: UNK
     Dates: start: 20010101
  4. PANTOPRAZOLE SODIUM [Concomitant]
     Dosage: UNK
     Dates: start: 20010101
  5. XENICAL [Concomitant]
     Dosage: UNK
     Dates: start: 20040101
  6. EZETIMIBE [Suspect]
     Indication: PRODUCT USED FOR UNKNOWN INDICATION
     Dosage: 10 MG, QD
     Route: 048
     Dates: start: 20100901

REACTIONS (8)
  - CONDITION AGGRAVATED [None]
  - PROTEIN C INCREASED [None]
  - ARTHRALGIA [None]
  - OBESITY [None]
  - OEDEMA PERIPHERAL [None]
  - MUSCLE MASS [None]
  - PAIN [None]
  - RED BLOOD CELL SEDIMENTATION RATE INCREASED [None]
